FAERS Safety Report 15547097 (Version 1)
Quarter: 2018Q4

REPORT INFORMATION
  Report Type: Spontaneous
  Country: US (occurrence: US)
  Receive Date: 20181024
  Receipt Date: 20181024
  Transmission Date: 20190205
  Serious: Yes (Other)
  Sender: FDA-Public Use
  Company Number: None

PATIENT
  Age: 26 Year
  Sex: Female

DRUGS (1)
  1. CIPROFLOXACIN. [Suspect]
     Active Substance: CIPROFLOXACIN
     Indication: URINARY TRACT INFECTION
     Route: 048
     Dates: start: 20180701, end: 20180710

REACTIONS (7)
  - Depressed level of consciousness [None]
  - Neck pain [None]
  - Tendonitis [None]
  - Urinary tract infection [None]
  - Anxiety [None]
  - Back pain [None]
  - Panic attack [None]

NARRATIVE: CASE EVENT DATE: 20180701
